FAERS Safety Report 4527892-X (Version None)
Quarter: 2004Q4

REPORT INFORMATION
  Report Type: 
  Country: None (occurrence: None)
  Receive Date: 20041123
  Receipt Date: 20041018
  Transmission Date: 20050328
  Serious: Yes (Death)
  Sender: FDA-Public Use
  Company Number: US-JNJFOC-20041005742

PATIENT
  Age: 47 Year
  Sex: Male

DRUGS (3)
  1. RISPERDAL [Suspect]
     Indication: SCHIZOPHRENIA
     Dosage: 25 MG, 1 IN 2 WEEK, INTRA-MUSCULAR
     Route: 030
     Dates: start: 20040420, end: 20040518
  2. PROZAC [Concomitant]
  3. ABILIFY [Concomitant]

REACTIONS (1)
  - COMPLETED SUICIDE [None]
